FAERS Safety Report 8548456-7 (Version None)
Quarter: 2012Q3

REPORT INFORMATION
  Report Type: 
  Country: None (occurrence: None)
  Receive Date: 20120717
  Receipt Date: 20120711
  Transmission Date: 20120928
  Serious: Yes (Disabling)
  Sender: FDA-Public Use
  Company Number: GBR/UKI/12/0025003

PATIENT
  Age: 75 Year
  Sex: Female
  Weight: 110 kg

DRUGS (5)
  1. LEVETIRACETAM [Suspect]
     Indication: EPILEPSY
     Dosage: 1.5 MG, 2 IN 1 D, ORAL
     Route: 047
     Dates: start: 20120101, end: 20120501
  2. SIMVASTATIN [Concomitant]
  3. LEVOTHYROXINE SODIUM [Concomitant]
  4. SULPIRIDE (SULPIRIDE) [Concomitant]
  5. CARBAMAZEPINE [Suspect]
     Indication: EPILEPSY
     Dosage: 200 MG, 2 IN 1 D, ORAL
     Route: 048
     Dates: start: 20050101

REACTIONS (2)
  - DRUG INTERACTION [None]
  - FATIGUE [None]
